FAERS Safety Report 25220656 (Version 1)
Quarter: 2025Q2

REPORT INFORMATION
  Report Type: Spontaneous
  Country: AE (occurrence: AE)
  Receive Date: 20250421
  Receipt Date: 20250421
  Transmission Date: 20250716
  Serious: Yes (Death, Hospitalization)
  Sender: NOVARTIS
  Company Number: AE-002147023-NVSC2025AE064536

PATIENT
  Sex: Male

DRUGS (1)
  1. SCEMBLIX [Suspect]
     Active Substance: ASCIMINIB HYDROCHLORIDE
     Indication: Chronic myeloid leukaemia
     Dosage: 200 MG, QD (5 TABLETS OF 40 MGS DAILY)
     Route: 048
     Dates: start: 202405

REACTIONS (3)
  - Transformation to acute myeloid leukaemia [Fatal]
  - Chronic myeloid leukaemia transformation [Fatal]
  - Monoblast count increased [Unknown]
